FAERS Safety Report 8511777-8 (Version None)
Quarter: 2012Q3

REPORT INFORMATION
  Report Type: 
  Country: None (occurrence: None)
  Receive Date: 20120716
  Receipt Date: 20120709
  Transmission Date: 20120928
  Serious: Yes (Hospitalization, Other)
  Sender: FDA-Public Use
  Company Number: PHHY2012JP044581

PATIENT
  Sex: Male
  Weight: 51 kg

DRUGS (7)
  1. LIVALO KOWA [Concomitant]
     Dosage: 2 MG
     Route: 048
     Dates: start: 20101203
  2. SITAGLIPTIN PHOSPHATE [Concomitant]
     Dosage: 50 MG
     Route: 048
     Dates: start: 20110830
  3. PLAVIX [Concomitant]
     Dosage: 75 MG
     Route: 048
     Dates: start: 20110830
  4. ALISKIREN [Suspect]
     Indication: HYPERTENSION
     Dosage: 150 MG
     Route: 048
     Dates: start: 20101105
  5. INDAPAMIDE [Concomitant]
     Indication: HYPERTENSION
     Dosage: 1 MG
     Route: 048
     Dates: start: 20101203, end: 20110521
  6. URSO 250 [Concomitant]
     Dosage: 300 MG
     Route: 048
     Dates: start: 20061013, end: 20101203
  7. WARFARIN SODIUM [Concomitant]
     Dosage: 2 MG
     Route: 048
     Dates: start: 20061013

REACTIONS (2)
  - DIABETES MELLITUS [None]
  - CAROTID ARTERIOSCLEROSIS [None]
